FAERS Safety Report 16643499 (Version 1)
Quarter: 2019Q3

REPORT INFORMATION
  Report Type: Spontaneous
  Country: US (occurrence: US)
  Receive Date: 20190729
  Receipt Date: 20190729
  Transmission Date: 20191004
  Serious: No
  Sender: FDA-Public Use
  Company Number: US-PRINSTON PHARMACEUTICAL INC.-2019PRN00287

PATIENT
  Age: 82 Year
  Sex: Female
  Weight: 56.69 kg

DRUGS (9)
  1. CRESTOR [Concomitant]
     Active Substance: ROSUVASTATIN CALCIUM
  2. AMLODIPINE [Concomitant]
     Active Substance: AMLODIPINE BESYLATE
     Dosage: 5 MG, 1X/DAY
  3. SULFASALAZINE. [Concomitant]
     Active Substance: SULFASALAZINE
  4. MULTIVITAMIN [Concomitant]
     Active Substance: VITAMINS
  5. ALEVE [Concomitant]
     Active Substance: NAPROXEN SODIUM
     Dosage: UNK, AS NEEDED
  6. CLONAZEPAM. [Suspect]
     Active Substance: CLONAZEPAM
     Indication: ANXIETY
     Dosage: 0.5 MG, 1X/DAY
     Route: 048
     Dates: start: 20190208, end: 20190210
  7. ASPIRIN. [Concomitant]
     Active Substance: ASPIRIN
     Dosage: UNK, AS NEEDED
  8. FISH OIL [Concomitant]
     Active Substance: FISH OIL
  9. OSCAL + VITAMIN D [Concomitant]

REACTIONS (4)
  - Head discomfort [Recovered/Resolved]
  - Feeling abnormal [Recovered/Resolved]
  - Mental impairment [Recovered/Resolved]
  - Product substitution issue [Recovered/Resolved]

NARRATIVE: CASE EVENT DATE: 20190208
